FAERS Safety Report 8522442-5 (Version None)
Quarter: 2012Q3

REPORT INFORMATION
  Report Type: 
  Country: None (occurrence: None)
  Receive Date: 20120719
  Receipt Date: 20120716
  Transmission Date: 20120928
  Serious: Yes (Other)
  Sender: FDA-Public Use
  Company Number: US-PFIZER INC-2012171144

PATIENT
  Sex: Female
  Weight: 72.562 kg

DRUGS (7)
  1. LIPITOR [Suspect]
     Dosage: UNK
  2. ASPIRIN [Concomitant]
     Dosage: 81 MG, UNK
  3. DIOVAN [Concomitant]
     Dosage: 160/25 MG, UNK
  4. DILTIAZEM [Concomitant]
     Dosage: 240 MG, UNK
  5. PLAVIX [Concomitant]
     Dosage: 75 MG, WEEKLY
  6. LIPITOR [Suspect]
     Indication: BLOOD CHOLESTEROL INCREASED
     Dosage: 80 MG, DAILY
  7. NORCO [Concomitant]
     Dosage: UNK

REACTIONS (1)
  - CARDIAC DISORDER [None]
